FAERS Safety Report 9511786 (Version 1)
Quarter: 2013Q3

REPORT INFORMATION
  Report Type: Spontaneous
  Country: US (occurrence: US)
  Receive Date: 20130910
  Receipt Date: 20130910
  Transmission Date: 20140515
  Serious: No
  Sender: FDA-Public Use
  Company Number: US-009507513-1309USA001519

PATIENT
  Age: 55 Year
  Sex: Female

DRUGS (6)
  1. PEGINTRON [Suspect]
     Indication: HEPATITIS C
     Dosage: 150 MICROGRAM/WEEK, STRENGTH 150/0.5
     Route: 058
     Dates: start: 20130812, end: 20130826
  2. RIBASPHERE [Suspect]
     Dosage: UNK
     Dates: end: 20130826
  3. INCIVEK [Suspect]
     Dosage: UNK
     Dates: end: 20130826
  4. TIMOLOL MALEATE [Concomitant]
  5. ZOLPIDEM TARTRATE [Concomitant]
     Dosage: UNK
  6. TIZANIDINE HYDROCHLORIDE [Concomitant]

REACTIONS (3)
  - Insomnia [Recovering/Resolving]
  - Fatigue [Recovering/Resolving]
  - Alopecia [Recovering/Resolving]
